FAERS Safety Report 12328113 (Version 1)
Quarter: 2016Q2

REPORT INFORMATION
  Report Type: Report from Study
  Country: US (occurrence: US)
  Receive Date: 20160503
  Receipt Date: 20160503
  Transmission Date: 20160815
  Serious: Yes (Hospitalization, Other)
  Sender: FDA-Public Use
  Company Number: US-REGENERON PHARMACEUTICALS, INC.-2016-16251

PATIENT

DRUGS (1)
  1. ARCALYST [Suspect]
     Active Substance: RILONACEPT
     Indication: BURSITIS
     Dosage: 160 MG MILLIGRAM(S), UNK

REACTIONS (3)
  - International normalised ratio abnormal [Unknown]
  - Diarrhoea [Unknown]
  - Haematochezia [Unknown]
